FAERS Safety Report 5363931-4 (Version None)
Quarter: 2007Q2

REPORT INFORMATION
  Report Type: 
  Country: None (occurrence: None)
  Receive Date: 20070620
  Receipt Date: 20070611
  Transmission Date: 20071010
  Serious: Yes (Other)
  Sender: FDA-Public Use
  Company Number: US-PFIZER INC-2007038084

PATIENT
  Sex: Female
  Weight: 52.2 kg

DRUGS (5)
  1. SERTRALINE [Suspect]
     Indication: DEPRESSION
  2. ALCOHOL [Interacting]
  3. ALL OTHER THERAPEUTIC PRODUCTS [Suspect]
  4. YASMIN [Concomitant]
  5. FAMVIR [Concomitant]

REACTIONS (8)
  - BACK PAIN [None]
  - DRUG INTERACTION [None]
  - HEADACHE [None]
  - MYALGIA [None]
  - MYOCLONUS [None]
  - PYREXIA [None]
  - SEROTONIN SYNDROME [None]
  - WHITE BLOOD CELL COUNT INCREASED [None]
